FAERS Safety Report 10684459 (Version 1)
Quarter: 2014Q4

REPORT INFORMATION
  Report Type: Spontaneous
  Country: JP (occurrence: JP)
  Receive Date: 20141231
  Receipt Date: 20141231
  Transmission Date: 20150529
  Serious: Yes (Other)
  Sender: FDA-Public Use
  Company Number: PHHY2014JP168582

PATIENT

DRUGS (2)
  1. SANDIMMUNE [Suspect]
     Active Substance: CYCLOSPORINE
     Indication: PSORIASIS
     Dosage: 2 DF, QD( CYCLE OF 2 CAPSULES FOR ONE DAY AND 1 CAPSULE FOR 1 DAY)
     Route: 048
  2. SANDIMMUNE [Suspect]
     Active Substance: CYCLOSPORINE
     Dosage: 1 DF, QD (CYCLE OF 2 CAPSULES FOR ONE DAY AND 1 CAPSULE FOR 1 DAY)
     Route: 048

REACTIONS (2)
  - Hydronephrosis [Unknown]
  - Renal impairment [Unknown]
